FAERS Safety Report 7546412-9 (Version None)
Quarter: 2011Q2

REPORT INFORMATION
  Report Type: 
  Country: None (occurrence: None)
  Receive Date: 20110614
  Receipt Date: 20110610
  Transmission Date: 20111010
  Serious: Yes (Death)
  Sender: FDA-Public Use
  Company Number: PHHY2011AR51495

PATIENT
  Sex: Female

DRUGS (1)
  1. EXELON [Suspect]
     Dosage: PATCH 5 CM DAILY
     Route: 062

REACTIONS (3)
  - ABNORMAL BEHAVIOUR [None]
  - SPEECH DISORDER [None]
  - DEATH [None]
